FAERS Safety Report 12489683 (Version 1)
Quarter: 2016Q2

REPORT INFORMATION
  Report Type: Report from Study
  Country: HN (occurrence: HN)
  Receive Date: 20160622
  Receipt Date: 20160622
  Transmission Date: 20160815
  Serious: Yes (Other)
  Sender: FDA-Public Use
  Company Number: PHHY2016HN084870

PATIENT
  Age: 69 Year
  Sex: Female

DRUGS (2)
  1. EXFORGE HCT [Suspect]
     Active Substance: AMLODIPINE BESYLATE\HYDROCHLOROTHIAZIDE\VALSARTAN
     Indication: PRODUCT USED FOR UNKNOWN INDICATION
     Dosage: 1 DF, (VALSARTAN 160 MG, AMLODIPINE 5 MG, HYDROCHLOROTHIAZIDE 25 MG)
     Route: 065
  2. EXFORGE HCT [Suspect]
     Active Substance: AMLODIPINE BESYLATE\HYDROCHLOROTHIAZIDE\VALSARTAN
     Dosage: UNK
     Route: 065
     Dates: start: 20160617

REACTIONS (1)
  - Cerebrovascular accident [Unknown]
